FAERS Safety Report 8330600 (Version 2)
Quarter: 2013Q4

REPORT INFORMATION
  Report Type: Spontaneous
  Country: AU (occurrence: AU)
  Receive Date: 20120111
  Receipt Date: 20131002
  Transmission Date: 20140711
  Serious: Yes (Death)
  Sender: FDA-Public Use
  Company Number: AU-ALEXION PHARMACEUTICALS INC.-A201200030

PATIENT
  Sex: Male

DRUGS (3)
  1. SOLIRIS 300MG [Suspect]
     Indication: HAEMOLYTIC URAEMIC SYNDROME
     Dosage: UNK
     Route: 042
     Dates: start: 20111210
  2. SOLIRIS 300MG [Suspect]
     Indication: OFF LABEL USE
     Dosage: UNK
     Route: 042
     Dates: end: 20111231
  3. CIPROFLOXACIN [Concomitant]

REACTIONS (2)
  - Sepsis [Fatal]
  - Respiratory failure [Fatal]
